FAERS Safety Report 7936879-6 (Version None)
Quarter: 2011Q4

REPORT INFORMATION
  Report Type: 
  Country: None (occurrence: None)
  Receive Date: 20111123
  Receipt Date: 20111123
  Transmission Date: 20120403
  Serious: Yes (Other)
  Sender: FDA-Public Use
  Company Number: None

PATIENT
  Age: 35 Year
  Sex: Male
  Weight: 92.986 kg

DRUGS (1)
  1. PROPECIA [Suspect]
     Indication: ALOPECIA
     Dosage: 1MG
     Route: 048
     Dates: start: 20040101, end: 20060830

REACTIONS (3)
  - WEIGHT INCREASED [None]
  - SEXUAL DYSFUNCTION [None]
  - GYNAECOMASTIA [None]
